FAERS Safety Report 6554765-3 (Version None)
Quarter: 2010Q1

REPORT INFORMATION
  Report Type: 
  Country: None (occurrence: None)
  Receive Date: 20100125
  Receipt Date: 20100114
  Transmission Date: 20100710
  Serious: Yes (Other)
  Sender: FDA-Public Use
  Company Number: SPV1-2010-00048

PATIENT
  Age: 10 Year
  Sex: Male
  Weight: 27.2 kg

DRUGS (3)
  1. ADDERALL XR 10 [Suspect]
     Indication: DRUG USE FOR UNKNOWN INDICATION
     Dosage: 20 MG, 1X/DAY:QD, ORAL; 15 , ORAL
     Route: 048
  2. ADDERALL XR 10 [Suspect]
     Indication: DRUG USE FOR UNKNOWN INDICATION
     Dosage: 20 MG, 1X/DAY:QD, ORAL; 15 , ORAL
     Route: 048
  3. OMEGA-3 /00931501/ (DOCOSAHEXANOIC ACID, EICOSAPENTAENOIC ACID) [Concomitant]

REACTIONS (5)
  - EYE MOVEMENT DISORDER [None]
  - HEADACHE [None]
  - MEMORY IMPAIRMENT [None]
  - SLEEP DISORDER [None]
  - UNRESPONSIVE TO STIMULI [None]
